FAERS Safety Report 5738413-8 (Version None)
Quarter: 2008Q2

REPORT INFORMATION
  Report Type: 
  Country: None (occurrence: None)
  Receive Date: 20080513
  Receipt Date: 20080424
  Transmission Date: 20081010
  Serious: Yes (Hospitalization, Other)
  Sender: FDA-Public Use
  Company Number: PRA1-2008-00011

PATIENT
  Age: 13 Year
  Sex: Male
  Weight: 58.5 kg

DRUGS (1)
  1. METHYLPHENIDATE HCL [Suspect]
     Indication: ATTENTION DEFICIT/HYPERACTIVITY DISORDER
     Dosage: 20 MG, 1X DAY: QD, TRANSDERMAL
     Route: 062
     Dates: start: 20070929, end: 20080229

REACTIONS (2)
  - CLONIC CONVULSION [None]
  - DISEASE PROGRESSION [None]
